FAERS Safety Report 10778322 (Version 2)
Quarter: 2015Q3

REPORT INFORMATION
  Report Type: Report from Study
  Country: US (occurrence: US)
  Receive Date: 20150209
  Receipt Date: 20150805
  Transmission Date: 20151125
  Serious: No
  Sender: FDA-Public Use
  Company Number: US-AMGEN-USASL2014088196

PATIENT
  Sex: Male

DRUGS (3)
  1. NPLATE [Suspect]
     Active Substance: ROMIPLOSTIM
     Indication: IMMUNE THROMBOCYTOPENIC PURPURA
     Dosage: UNK
     Route: 065
  2. TYLENOL [Concomitant]
     Active Substance: ACETAMINOPHEN
     Dosage: UNK
  3. BENADRYL [Concomitant]
     Active Substance: DIPHENHYDRAMINE HYDROCHLORIDE
     Dosage: UNK

REACTIONS (8)
  - Feeling abnormal [Unknown]
  - Insomnia [Recovering/Resolving]
  - Headache [Unknown]
  - Platelet count decreased [Unknown]
  - Nervousness [Unknown]
  - Discomfort [Unknown]
  - Contusion [Unknown]
  - Irritability [Unknown]

NARRATIVE: CASE EVENT DATE: 20141112
